FAERS Safety Report 19272378 (Version 3)
Quarter: 2022Q1

REPORT INFORMATION
  Report Type: Report from Study
  Country: US (occurrence: US)
  Receive Date: 20210518
  Receipt Date: 20220307
  Transmission Date: 20220423
  Serious: Yes (Hospitalization, Other)
  Sender: FDA-Public Use
  Company Number: NVSC2021US101825

PATIENT
  Age: 74 Year
  Sex: Female

DRUGS (1)
  1. PIQRAY [Suspect]
     Active Substance: ALPELISIB
     Indication: Breast cancer
     Dosage: 300 MG, QD
     Route: 048
     Dates: start: 20210419, end: 20210425

REACTIONS (12)
  - Colitis [Unknown]
  - Intestinal ischaemia [Unknown]
  - Haematochezia [Unknown]
  - Skin discharge [Unknown]
  - Secretion discharge [Unknown]
  - Colitis ischaemic [Unknown]
  - Inflammatory bowel disease [Unknown]
  - Bowel movement irregularity [Unknown]
  - Stomatitis [Unknown]
  - Abdominal pain [Unknown]
  - Hyperglycaemia [Unknown]
  - Illness [Unknown]

NARRATIVE: CASE EVENT DATE: 20210425
